FAERS Safety Report 5252855-9 (Version None)
Quarter: 2007Q1

REPORT INFORMATION
  Report Type: 
  Country: None (occurrence: None)
  Receive Date: 20070227
  Receipt Date: 20070221
  Transmission Date: 20070707
  Serious: Yes (Death, Life-Threatening)
  Sender: FDA-Public Use
  Company Number: 231151

PATIENT
  Age: 81 Year
  Sex: Female

DRUGS (9)
  1. GRTPA (ALTEPLASE) PWDR + SOLVENT, INFUSION SOLN [Suspect]
     Indication: CEREBRAL INFARCTION
     Dosage: 39.4 MG, SINGLE, INTRAVENOUS
     Route: 042
     Dates: start: 20060929, end: 20060929
  2. RADICUT (EDARAVONE) [Concomitant]
  3. EVISTA [Concomitant]
  4. VOLTAREN [Concomitant]
  5. CONIEL (BENIDIPINE) [Concomitant]
  6. ALFAROL (ALFACALCIDOL) [Concomitant]
  7. ALPRAZOLAM [Concomitant]
  8. ALOSENN (UNK INGREDIENTS) (GENERIC COMPONENT(S) NOT KNOWN) [Concomitant]
  9. HALCION [Concomitant]

REACTIONS (7)
  - ACTIVATED PARTIAL THROMBOPLASTIN TIME PROLONGED [None]
  - CARDIAC DISORDER [None]
  - CARDIO-RESPIRATORY ARREST [None]
  - CAROTID ARTERY OCCLUSION [None]
  - NO THERAPEUTIC RESPONSE [None]
  - VENTRICULAR FIBRILLATION [None]
  - VENTRICULAR TACHYCARDIA [None]
